FAERS Safety Report 18103872 (Version 2)
Quarter: 2022Q1

REPORT INFORMATION
  Report Type: Spontaneous
  Country: CA (occurrence: CA)
  Receive Date: 20200803
  Receipt Date: 20220303
  Transmission Date: 20220423
  Serious: Yes (Hospitalization)
  Sender: FDA-Public Use
  Company Number: CA-SA-2020SA197716

PATIENT
  Age: 82 Year
  Sex: Female

DRUGS (4)
  1. RIFAMPIN [Suspect]
     Active Substance: RIFAMPIN
     Dosage: 300 MG, BID
     Route: 048
     Dates: start: 20200131, end: 20200207
  2. CEFAZOLIN [Suspect]
     Active Substance: CEFAZOLIN
     Indication: Endocarditis
     Dosage: 2000 MG, Q3D
     Dates: start: 20200128, end: 20200207
  3. GENTAMICIN [Concomitant]
     Active Substance: GENTAMICIN
     Dosage: 80 MG,80 MG, QL2H,REDUCED TO CO MG IV Q24H STARTED ON JAN 31
     Dates: start: 20200128
  4. GENTAMICIN [Concomitant]
     Active Substance: GENTAMICIN
     Dosage: ,80 MG, QL2H,REDUCED TO CO MG IV Q24H STARTED ON JAN 3180 MG, QD
     Dates: start: 20200131, end: 20200203

REACTIONS (2)
  - Rash maculo-papular [Recovered/Resolved]
  - Blood creatinine increased [Recovered/Resolved]

NARRATIVE: CASE EVENT DATE: 20200202
